FAERS Safety Report 8296658-X (Version None)
Quarter: 2012Q2

REPORT INFORMATION
  Report Type: 
  Country: None (occurrence: None)
  Receive Date: 20120418
  Receipt Date: 20120418
  Transmission Date: 20120825
  Serious: Yes (Other)
  Sender: FDA-Public Use
  Company Number: None

PATIENT
  Age: 69 Year
  Sex: Male
  Weight: 70.31 kg

DRUGS (1)
  1. TOBRAMYCIN [Suspect]
     Indication: LUNG INFECTION PSEUDOMONAL
     Dosage: 475 MG
     Route: 042
     Dates: start: 20120116, end: 20120120

REACTIONS (4)
  - RENAL FAILURE ACUTE [None]
  - TOXICITY TO VARIOUS AGENTS [None]
  - HAEMODIALYSIS [None]
  - RENAL TUBULAR NECROSIS [None]
